FAERS Safety Report 6375397-6 (Version None)
Quarter: 2009Q3

REPORT INFORMATION
  Report Type: 
  Country: None (occurrence: None)
  Receive Date: 20090921
  Receipt Date: 20090909
  Transmission Date: 20100115
  Serious: Yes (Hospitalization)
  Sender: FDA-Public Use
  Company Number: 231236K09USA

PATIENT
  Age: 56 Year
  Sex: Female
  Weight: 95 kg

DRUGS (10)
  1. REBIF [Suspect]
     Indication: MULTIPLE SCLEROSIS
     Dosage: 44 MCG, 3 IN 1 WEEKS, SUBCUTANEOUS
     Route: 058
     Dates: start: 20070207
  2. LISINOPRIL [Suspect]
     Indication: HYPERTENSION
     Dates: end: 20090101
  3. TOPAMAX [Suspect]
     Indication: HYPERTENSION
     Dates: start: 20080701, end: 20090101
  4. VYTORIN [Concomitant]
  5. LANTUS [Concomitant]
  6. INSULIN (INSULIN /00030501/) [Concomitant]
  7. AVANDARYL (ALL OTHER THERAPEUTIC PRODUCTS) [Concomitant]
  8. TRICOR [Concomitant]
  9. MIRAPEX [Concomitant]
  10. GABAPENTIN [Concomitant]

REACTIONS (5)
  - ABASIA [None]
  - BLOOD POTASSIUM INCREASED [None]
  - PAIN [None]
  - RENAL IMPAIRMENT [None]
  - TREMOR [None]
